FAERS Safety Report 18217582 (Version 1)
Quarter: 2020Q3

REPORT INFORMATION
  Report Type: Spontaneous
  Country: US (occurrence: US)
  Receive Date: 20200831
  Receipt Date: 20200831
  Transmission Date: 20201103
  Serious: Yes (Hospitalization)
  Sender: FDA-Public Use
  Company Number: None

PATIENT
  Age: 72 Year
  Sex: Male
  Weight: 107.95 kg

DRUGS (1)
  1. CEFEPIME (CEFEPIME HCL 2GM/BAG INJ) [Suspect]
     Active Substance: CEFEPIME HYDROCHLORIDE
     Indication: OSTEOMYELITIS
     Dates: start: 20200428, end: 20200513

REACTIONS (6)
  - Uraemic encephalopathy [None]
  - Neurotoxicity [None]
  - Delirium [None]
  - Encephalopathy [None]
  - Mental status changes [None]
  - Confusional state [None]

NARRATIVE: CASE EVENT DATE: 20200512
